FAERS Safety Report 7250313-3 (Version None)
Quarter: 2011Q1

REPORT INFORMATION
  Report Type: 
  Country: None (occurrence: None)
  Receive Date: 20110121
  Receipt Date: 20110121
  Transmission Date: 20110831
  Serious: Yes (Other)
  Sender: FDA-Public Use
  Company Number: None

PATIENT
  Age: 27 Year
  Sex: Male
  Weight: 72 kg

DRUGS (1)
  1. PROPECIA [Suspect]
     Indication: ALOPECIA
     Dosage: 1MG/PILL ONE EACH DAY PO
     Route: 048
     Dates: start: 20101110, end: 20101120

REACTIONS (22)
  - LOSS OF LIBIDO [None]
  - DISTURBANCE IN SEXUAL AROUSAL [None]
  - HEADACHE [None]
  - ERECTILE DYSFUNCTION [None]
  - DISTURBANCE IN ATTENTION [None]
  - GROIN PAIN [None]
  - PENILE PAIN [None]
  - GENITAL HYPOAESTHESIA [None]
  - TESTICULAR PAIN [None]
  - INSOMNIA [None]
  - PARAESTHESIA OF GENITAL MALE [None]
  - FATIGUE [None]
  - PANIC ATTACK [None]
  - ABNORMAL DREAMS [None]
  - SPEECH DISORDER [None]
  - EMOTIONAL DISORDER [None]
  - APATHY [None]
  - UNEVALUABLE EVENT [None]
  - DYSPHEMIA [None]
  - THINKING ABNORMAL [None]
  - IMPAIRED WORK ABILITY [None]
  - HYPERSOMNIA [None]
